FAERS Safety Report 7017567-X (Version None)
Quarter: 2010Q3

REPORT INFORMATION
  Report Type: 
  Country: None (occurrence: None)
  Receive Date: 20100928
  Receipt Date: 20100727
  Transmission Date: 20110219
  Serious: No
  Sender: FDA-Public Use
  Company Number: US-MYLANLABS-2010S1013686

PATIENT
  Age: 25 Year
  Sex: Female

DRUGS (1)
  1. TOPIRAMATE TABLETS [Suspect]
     Indication: MIGRAINE
     Route: 048
     Dates: start: 20091001

REACTIONS (1)
  - GINGIVAL RECESSION [None]
